FAERS Safety Report 15468125 (Version 1)
Quarter: 2018Q4

REPORT INFORMATION
  Report Type: Spontaneous
  Country: US (occurrence: US)
  Receive Date: 20181005
  Receipt Date: 20181005
  Transmission Date: 20190204
  Serious: Yes (Hospitalization, Other)
  Sender: FDA-Public Use
  Company Number: US-ALKEM LABORATORIES LIMITED-US-ALKEM-2018-07938

PATIENT
  Age: 44 Year
  Sex: Male

DRUGS (2)
  1. RITONAVIR. [Suspect]
     Active Substance: RITONAVIR
     Indication: HIV INFECTION
     Dosage: UNK
     Route: 065
  2. TRIAMCINOLONE ACETONIDE. [Suspect]
     Active Substance: TRIAMCINOLONE ACETONIDE
     Indication: OSTEOARTHRITIS
     Dosage: 80 MG, UNK, INJECTION
     Route: 014

REACTIONS (4)
  - Hypothalamic pituitary adrenal axis suppression [Unknown]
  - Metabolic syndrome [Unknown]
  - Drug interaction [Unknown]
  - Hyperglycaemic hyperosmolar nonketotic syndrome [Unknown]
